FAERS Safety Report 14217792 (Version 3)
Quarter: 2018Q3

REPORT INFORMATION
  Report Type: Spontaneous
  Country: CA (occurrence: CA)
  Receive Date: 20171123
  Receipt Date: 20180716
  Transmission Date: 20181010
  Serious: Yes (Other)
  Sender: FDA-Public Use
  Company Number: CA-ROCHE-2025232

PATIENT
  Age: 53 Year
  Sex: Female

DRUGS (15)
  1. XOLAIR [Suspect]
     Active Substance: OMALIZUMAB
     Route: 058
     Dates: start: 20170511
  2. XOLAIR [Suspect]
     Active Substance: OMALIZUMAB
     Route: 058
     Dates: start: 20170608
  3. XOLAIR [Suspect]
     Active Substance: OMALIZUMAB
     Route: 058
     Dates: start: 20170803
  4. BRICANYL [Concomitant]
     Active Substance: TERBUTALINE SULFATE
     Indication: PRODUCT USED FOR UNKNOWN INDICATION
     Dosage: BID
     Route: 065
  5. XOLAIR [Suspect]
     Active Substance: OMALIZUMAB
     Route: 058
     Dates: start: 20161222
  6. XOLAIR [Suspect]
     Active Substance: OMALIZUMAB
     Route: 058
     Dates: start: 20170317
  7. XOLAIR [Suspect]
     Active Substance: OMALIZUMAB
     Route: 058
     Dates: start: 20170119
  8. XOLAIR [Suspect]
     Active Substance: OMALIZUMAB
     Indication: ASTHMA
     Route: 058
     Dates: start: 20160610
  9. XOLAIR [Suspect]
     Active Substance: OMALIZUMAB
     Route: 058
     Dates: start: 20161124
  10. XOLAIR [Suspect]
     Active Substance: OMALIZUMAB
     Route: 058
     Dates: start: 20170216
  11. SYMBICORT [Concomitant]
     Active Substance: BUDESONIDE\FORMOTEROL FUMARATE DIHYDRATE
     Dosage: BID
     Route: 065
  12. XOLAIR [Suspect]
     Active Substance: OMALIZUMAB
     Dosage: INJECTED TOO EARLY
     Route: 058
     Dates: start: 20180706
  13. SYMBICORT [Concomitant]
     Active Substance: BUDESONIDE\FORMOTEROL FUMARATE DIHYDRATE
     Indication: PRODUCT USED FOR UNKNOWN INDICATION
     Dosage: THREE TIMES A DAY TID
     Route: 065
  14. XOLAIR [Suspect]
     Active Substance: OMALIZUMAB
     Route: 058
     Dates: start: 20160901
  15. XOLAIR [Suspect]
     Active Substance: OMALIZUMAB
     Route: 058
     Dates: start: 20180612

REACTIONS (28)
  - Inappropriate schedule of drug administration [Unknown]
  - Fatigue [Unknown]
  - Neutrophilia [Unknown]
  - Weight increased [Unknown]
  - Hypersensitivity [Unknown]
  - Forced expiratory volume decreased [Unknown]
  - Fibromyalgia [Unknown]
  - Sensation of foreign body [Unknown]
  - Adrenal insufficiency [Unknown]
  - Nodule [Unknown]
  - Dizziness [Unknown]
  - Lung infiltration [Unknown]
  - Bronchomalacia [Unknown]
  - Chest discomfort [Unknown]
  - Dizziness postural [Unknown]
  - Aspergillus test positive [Unknown]
  - Anxiety [Unknown]
  - Blood pressure systolic increased [Unknown]
  - Asthma [Unknown]
  - Bronchitis [Unknown]
  - Infection [Unknown]
  - Increased bronchial secretion [Unknown]
  - Hypotension [Not Recovered/Not Resolved]
  - Drug ineffective [Unknown]
  - Post procedural complication [Unknown]
  - Productive cough [Unknown]
  - Dyspnoea [Not Recovered/Not Resolved]
  - Obstructive airways disorder [Unknown]

NARRATIVE: CASE EVENT DATE: 201608
